FAERS Safety Report 11368998 (Version 1)
Quarter: 2015Q3

REPORT INFORMATION
  Report Type: Spontaneous
  Country: US (occurrence: US)
  Receive Date: 20150812
  Receipt Date: 20150812
  Transmission Date: 20151125
  Serious: Yes (Hospitalization)
  Sender: FDA-Public Use
  Company Number: PHHY2015US092321

PATIENT
  Age: 59 Year
  Sex: Female

DRUGS (6)
  1. CAPECITABINE. [Suspect]
     Active Substance: CAPECITABINE
     Indication: METASTATIC CARCINOID TUMOUR
     Route: 065
  2. BEVACIZUMAB [Suspect]
     Active Substance: BEVACIZUMAB
     Indication: METASTATIC CARCINOID TUMOUR
     Route: 065
  3. OXALIPLATIN. [Suspect]
     Active Substance: OXALIPLATIN
     Indication: METASTATIC CARCINOID TUMOUR
     Route: 065
  4. EVEROLIMUS [Suspect]
     Active Substance: EVEROLIMUS
     Indication: METASTATIC CARCINOID TUMOUR
     Route: 065
  5. OCTREOTIDE. [Suspect]
     Active Substance: OCTREOTIDE
     Indication: METASTATIC CARCINOID TUMOUR
     Route: 065
  6. CAPECITABINE. [Suspect]
     Active Substance: CAPECITABINE
     Route: 065

REACTIONS (24)
  - Pericardial effusion [Recovering/Resolving]
  - Oedema peripheral [Recovering/Resolving]
  - Decreased appetite [Recovering/Resolving]
  - Jaundice [Unknown]
  - Carcinoid heart disease [Recovering/Resolving]
  - Atrial fibrillation [Recovering/Resolving]
  - Malignant neoplasm progression [Recovering/Resolving]
  - Clostridium difficile colitis [Recovering/Resolving]
  - Performance status decreased [Recovering/Resolving]
  - Asthenia [Recovering/Resolving]
  - Dilatation ventricular [Recovering/Resolving]
  - Flushing [Recovering/Resolving]
  - Weight decreased [Recovering/Resolving]
  - Tachycardia [Recovering/Resolving]
  - Portal vein thrombosis [Unknown]
  - Cardiac failure chronic [Recovering/Resolving]
  - Pleural effusion [Recovering/Resolving]
  - Pulmonary valve incompetence [Recovering/Resolving]
  - Dyspnoea exertional [Recovering/Resolving]
  - Right atrial dilatation [Recovering/Resolving]
  - Fatigue [Recovering/Resolving]
  - Abdominal pain [Recovering/Resolving]
  - Tricuspid valve incompetence [Recovering/Resolving]
  - Bronchospasm [Recovering/Resolving]

NARRATIVE: CASE EVENT DATE: 201304
